FAERS Safety Report 7043642-X (Version None)
Quarter: 2010Q4

REPORT INFORMATION
  Report Type: 
  Country: None (occurrence: None)
  Receive Date: 20101013
  Receipt Date: 20101011
  Transmission Date: 20110411
  Serious: Yes (Life-Threatening)
  Sender: FDA-Public Use
  Company Number: Z0003261B

PATIENT
  Sex: Female
  Weight: 79 kg

DRUGS (2)
  1. LAPATINIB [Suspect]
     Dosage: 1250MG PER DAY
     Route: 048
     Dates: start: 20100202
  2. CAPECITABINE [Suspect]
     Dosage: 2000MGM2 CYCLIC
     Route: 048
     Dates: start: 20100202

REACTIONS (1)
  - NEUTROPENIA [None]
